FAERS Safety Report 4360779-4 (Version None)
Quarter: 2004Q2

REPORT INFORMATION
  Report Type: 
  Country: None (occurrence: None)
  Receive Date: 20040517
  Receipt Date: 20040511
  Transmission Date: 20050107
  Serious: Yes (Hospitalization, Other)
  Sender: FDA-Public Use
  Company Number: 2004212817US

PATIENT
  Sex: Female

DRUGS (1)
  1. CELEBREX [Suspect]
     Indication: ARTHRITIS
     Dosage: 100 + 400 MG, QD
     Dates: start: 19980101, end: 20010101

REACTIONS (7)
  - ADHESION [None]
  - CYST [None]
  - HAEMATOCHEZIA [None]
  - HYSTERECTOMY [None]
  - INTESTINAL PERFORATION [None]
  - MULTIPLE ALLERGIES [None]
  - THROAT TIGHTNESS [None]
